FAERS Safety Report 5405795-6 (Version None)
Quarter: 2007Q3

REPORT INFORMATION
  Report Type: 
  Country: None (occurrence: None)
  Receive Date: 20070802
  Receipt Date: 20070723
  Transmission Date: 20080115
  Serious: Yes (Hospitalization)
  Sender: FDA-Public Use
  Company Number: FABR-10414

PATIENT
  Age: 46 Year
  Sex: Male
  Weight: 61 kg

DRUGS (15)
  1. FABRAZYME [Suspect]
     Indication: FABRY'S DISEASE
     Dosage: 61 MG Q2WKS IV
     Route: 042
  2. CYCLOSPORINE [Concomitant]
  3. IMURAN [Concomitant]
  4. CARDIZEM [Concomitant]
  5. THEOPHYLLINE [Concomitant]
  6. LASIX [Concomitant]
  7. ASPIRIN [Concomitant]
  8. COZAAR [Concomitant]
  9. PRAVACHOL [Concomitant]
  10. MEDROL [Concomitant]
  11. RENAL CAPS [Concomitant]
  12. COMBIVENT [Concomitant]
  13. ADVAIR DISKUS 100/50 [Concomitant]
  14. COUMADIN [Concomitant]
  15. TEGRETOL [Concomitant]

REACTIONS (9)
  - ATRIAL FIBRILLATION [None]
  - ATRIAL FLUTTER [None]
  - BLOOD CREATININE INCREASED [None]
  - BUNDLE BRANCH BLOCK LEFT [None]
  - CARDIAC MURMUR [None]
  - CORONARY ARTERY OCCLUSION [None]
  - LEFT VENTRICULAR HYPERTROPHY [None]
  - POST PROCEDURAL COMPLICATION [None]
  - PULMONARY OEDEMA [None]
